FAERS Safety Report 4323641-9 (Version None)
Quarter: 2004Q1

REPORT INFORMATION
  Report Type: 
  Country: None (occurrence: None)
  Receive Date: 20040326
  Receipt Date: 20040317
  Transmission Date: 20041129
  Serious: Yes (Hospitalization)
  Sender: FDA-Public Use
  Company Number: PHNU2004DE01249

PATIENT
  Sex: Female

DRUGS (1)
  1. LIORESAL [Suspect]
     Route: 065

REACTIONS (7)
  - ABDOMINAL PAIN [None]
  - ACIDOSIS [None]
  - BLOOD PH DECREASED [None]
  - HYPOKALAEMIA [None]
  - HYPONATRAEMIA [None]
  - RESPIRATORY FAILURE [None]
  - SOMNOLENCE [None]
